FAERS Safety Report 5024958-5 (Version None)
Quarter: 2006Q2

REPORT INFORMATION
  Report Type: 
  Country: None (occurrence: None)
  Receive Date: 20060607
  Receipt Date: 20060525
  Transmission Date: 20061013
  Serious: Yes (Hospitalization)
  Sender: FDA-Public Use
  Company Number: 2006P1000316

PATIENT
  Age: 56 Year
  Sex: Female
  Weight: 82.6 kg

DRUGS (12)
  1. RETEPLASE (RETEPLASE) [Suspect]
     Indication: ACUTE MYOCARDIAL INFARCTION
     Dosage: IV
     Route: 042
     Dates: start: 20060325, end: 20060325
  2. REOPRO [Suspect]
     Indication: MYOCARDIAL INFARCTION
     Dosage: IV
     Route: 042
     Dates: start: 20060325, end: 20060325
  3. ROSUVASTATIN [Concomitant]
  4. ACETYLSALICYLIC ACID SRT [Concomitant]
  5. CLOPIDOGREL [Concomitant]
  6. TRANDOLAPRIL [Concomitant]
  7. BISOPROLOL [Concomitant]
  8. RANITIDINE [Concomitant]
  9. METFORMIN HCL [Concomitant]
  10. AMINOPHYLLIN [Concomitant]
  11. BUDESONIDE [Concomitant]
  12. FOLIC ACID [Concomitant]

REACTIONS (4)
  - ARTERIOSCLEROSIS CORONARY ARTERY [None]
  - CORONARY ARTERY OCCLUSION [None]
  - CORONARY ARTERY STENOSIS [None]
  - VENTRICULAR HYPOKINESIA [None]
